FAERS Safety Report 4528637-X (Version None)
Quarter: 2004Q4

REPORT INFORMATION
  Report Type: 
  Country: None (occurrence: None)
  Receive Date: 20041216
  Receipt Date: 20041111
  Transmission Date: 20050328
  Serious: Yes (Hospitalization, Other)
  Sender: FDA-Public Use
  Company Number: US-GLAXOSMITHKLINE-A0533534A

PATIENT
  Age: 73 Year
  Sex: Male
  Weight: 82.7 kg

DRUGS (9)
  1. ECOTRIN REGULAR STRENGTH TABLETS [Suspect]
     Indication: HYPERCOAGULATION
     Route: 048
     Dates: start: 19970101
  2. BEANO TABLETS [Suspect]
     Indication: FLATULENCE
     Route: 048
     Dates: start: 20010101
  3. ZYRTEC [Suspect]
     Dates: start: 19970101
  4. TOPROL-XL [Suspect]
     Dates: start: 19970101
  5. UNKNOWN BLOOD PRESSURE PILL [Suspect]
     Indication: BLOOD PRESSURE
     Route: 048
     Dates: start: 19970101
  6. COREG [Concomitant]
     Indication: HYPERTENSION
     Route: 048
  7. GLUCOSAMINE [Concomitant]
     Indication: ARTHRITIS
     Route: 048
  8. MULTIVITAMIN [Concomitant]
     Indication: HYPOVITAMINOSIS
     Route: 048
  9. FOLIC ACID [Concomitant]
     Indication: PROPHYLAXIS
     Route: 048

REACTIONS (5)
  - DIZZINESS [None]
  - DYSPNOEA [None]
  - HYPERTENSION [None]
  - LOSS OF CONSCIOUSNESS [None]
  - SYNCOPE [None]
